FAERS Safety Report 4566739-2 (Version None)
Quarter: 2005Q1

REPORT INFORMATION
  Report Type: 
  Country: None (occurrence: None)
  Receive Date: 20050201
  Receipt Date: 20011002
  Transmission Date: 20050727
  Serious: Yes (Other)
  Sender: FDA-Public Use
  Company Number: US-BRISTOL-MYERS SQUIBB COMPANY-11043387

PATIENT
  Sex: Female

DRUGS (9)
  1. STADOL [Suspect]
     Route: 045
  2. NEURONTIN [Concomitant]
  3. HALDOL [Concomitant]
  4. BUSPAR [Concomitant]
  5. IMIPRAM TAB [Concomitant]
  6. ZYPREXA [Concomitant]
  7. KLONOPIN [Concomitant]
  8. ATARAX [Concomitant]
  9. TOPAMAX [Concomitant]

REACTIONS (1)
  - DEPENDENCE [None]
